FAERS Safety Report 24754343 (Version 1)
Quarter: 2024Q4

REPORT INFORMATION
  Report Type: Spontaneous
  Country: IT (occurrence: IT)
  Receive Date: 20241219
  Receipt Date: 20241219
  Transmission Date: 20250115
  Serious: Yes (Other)
  Sender: UCB
  Company Number: IT-UCBSA-2024065504

PATIENT
  Age: 64 Year
  Sex: Female

DRUGS (4)
  1. BIMEKIZUMAB [Suspect]
     Active Substance: BIMEKIZUMAB
     Indication: Psoriatic arthropathy
     Dosage: INDUCTION PHASE DOSE
  2. BIMEKIZUMAB [Suspect]
     Active Substance: BIMEKIZUMAB
     Dosage: FIRST GIVING A SINGLE 160 MG DOSE
  3. BIMEKIZUMAB [Suspect]
     Active Substance: BIMEKIZUMAB
     Dosage: BIMEKIZUMAB EVERY 3 MONTHS INSTEAD OF EVERY 2 MONTHS
  4. BIMEKIZUMAB [Suspect]
     Active Substance: BIMEKIZUMAB
     Dosage: EVERY 4 MONTHS INSTEAD OF EVERY 2 MONTHS

REACTIONS (3)
  - Oesophageal candidiasis [Unknown]
  - Oral candidiasis [Unknown]
  - Off label use [Unknown]

NARRATIVE: CASE EVENT DATE: 20241211
